FAERS Safety Report 10932881 (Version 1)
Quarter: 2015Q1

REPORT INFORMATION
  Report Type: Spontaneous
  Country: US (occurrence: None)
  Receive Date: 20150319
  Receipt Date: 20150319
  Transmission Date: 20150721
  Serious: Yes (Disabling, Other)
  Sender: FDA-Public Use
  Company Number: None

PATIENT
  Age: 77 Year
  Sex: Male
  Weight: 61.69 kg

DRUGS (2)
  1. LISINOPRIL. [Concomitant]
     Active Substance: LISINOPRIL
  2. CIPROFLOXACIN 500MG TEVA [Suspect]
     Active Substance: CIPROFLOXACIN
     Indication: CYSTITIS
     Dosage: 2 TABLETS A DAY FOR 30 DAYS
     Route: 048
     Dates: start: 20141023, end: 20141207

REACTIONS (8)
  - Muscular weakness [None]
  - Burning sensation [None]
  - Weight bearing difficulty [None]
  - Arthralgia [None]
  - Blood pressure increased [None]
  - Gait disturbance [None]
  - Pain in extremity [None]
  - Tremor [None]

NARRATIVE: CASE EVENT DATE: 20150112
